FAERS Safety Report 6317724-1 (Version None)
Quarter: 2009Q3

REPORT INFORMATION
  Report Type: 
  Country: None (occurrence: None)
  Receive Date: 20090821
  Receipt Date: 20090813
  Transmission Date: 20100115
  Serious: Yes (Hospitalization, Other)
  Sender: FDA-Public Use
  Company Number: PHHY2009BR34924

PATIENT
  Age: 60 Year
  Sex: Female
  Weight: 80 kg

DRUGS (1)
  1. CODATEN [Suspect]
     Indication: FACIAL PAIN
     Dosage: 1 DF, Q8H
     Route: 048
     Dates: start: 20090805

REACTIONS (6)
  - ABDOMINAL DISTENSION [None]
  - AGITATION [None]
  - DIARRHOEA HAEMORRHAGIC [None]
  - DIZZINESS [None]
  - NAUSEA [None]
  - VOMITING [None]
